FAERS Safety Report 20525430 (Version 2)
Quarter: 2022Q3

REPORT INFORMATION
  Report Type: Spontaneous
  Country: US (occurrence: US)
  Receive Date: 20220228
  Receipt Date: 20220905
  Transmission Date: 20221027
  Serious: Yes (Death, Life-Threatening, Hospitalization, Other)
  Sender: FDA-Public Use
  Company Number: US-SA-SAC20220225001080

PATIENT
  Age: 71 Year
  Sex: Male
  Weight: 56.2 kg

DRUGS (13)
  1. DUVELISIB [Suspect]
     Active Substance: DUVELISIB
     Indication: Oropharyngeal squamous cell carcinoma
     Dosage: 25 MG, BID
     Route: 048
     Dates: start: 20211106, end: 20211217
  2. DOCETAXEL [Suspect]
     Active Substance: DOCETAXEL
     Indication: Oropharyngeal squamous cell carcinoma
     Dosage: 56 MG/M2, Q3W
     Route: 042
     Dates: start: 20211112, end: 20211201
  3. ASPIRIN [Concomitant]
     Active Substance: ASPIRIN
  4. ATORVASTATIN CALCIUM [Concomitant]
     Active Substance: ATORVASTATIN CALCIUM
  5. DEXAMETHASONE [Concomitant]
     Active Substance: DEXAMETHASONE
  6. DEXAMETHASONE [Concomitant]
     Active Substance: DEXAMETHASONE
  7. SODIUM FLUORIDE [Concomitant]
     Active Substance: SODIUM FLUORIDE
  8. LEVOTHYROXINE SODIUM [Concomitant]
     Active Substance: LEVOTHYROXINE SODIUM
  9. METOPROLOL SUCCINATE [Concomitant]
     Active Substance: METOPROLOL SUCCINATE
  10. NYSTATIN [Concomitant]
     Active Substance: NYSTATIN
  11. OMEPRAZOLE [Concomitant]
     Active Substance: OMEPRAZOLE
  12. SULFAMETHOXAZOLE\TRIMETHOPRIM [Concomitant]
     Active Substance: SULFAMETHOXAZOLE\TRIMETHOPRIM
  13. SODIUM FLUORIDE [Concomitant]
     Active Substance: SODIUM FLUORIDE

REACTIONS (10)
  - Cardiac arrest [Fatal]
  - Dysphagia [Fatal]
  - Weight decreased [Fatal]
  - Cytomegalovirus viraemia [Fatal]
  - Gastrointestinal haemorrhage [Fatal]
  - Mucosal inflammation [Fatal]
  - Pneumonia aspiration [Fatal]
  - Oesophagogastroduodenoscopy [Fatal]
  - Gastrostomy [Fatal]
  - Enterocolitis [Fatal]

NARRATIVE: CASE EVENT DATE: 20211217
